FAERS Safety Report 5548076-2 (Version None)
Quarter: 2007Q4

REPORT INFORMATION
  Report Type: 
  Country: None (occurrence: None)
  Receive Date: 20071206
  Receipt Date: 20071120
  Transmission Date: 20080405
  Serious: Yes (Congenital Anomaly)
  Sender: FDA-Public Use
  Company Number: 07GB000982

PATIENT
  Sex: 0

DRUGS (1)
  1. PAROXETINE [Suspect]
     Indication: DRUG USE FOR UNKNOWN INDICATION
     Dosage: 40 MG, TRANSPLACENTAL
     Route: 064

REACTIONS (3)
  - CONGENITAL FLOPPY INFANT [None]
  - CONGENITAL VISUAL ACUITY REDUCED [None]
  - DRUG EXPOSURE DURING PREGNANCY [None]
